FAERS Safety Report 19072743 (Version 4)
Quarter: 2021Q3

REPORT INFORMATION
  Report Type: Report from Study
  Country: CN (occurrence: CN)
  Receive Date: 20210330
  Receipt Date: 20210927
  Transmission Date: 20211014
  Serious: Yes (Hospitalization)
  Sender: FDA-Public Use
  Company Number: CN-ROCHE-2794192

PATIENT
  Age: 55 Year
  Sex: Female
  Weight: 69.6 kg

DRUGS (9)
  1. TRASTUZUMAB. [Suspect]
     Active Substance: TRASTUZUMAB
     Route: 041
     Dates: start: 20210225
  2. TIOPRONIN [Concomitant]
     Active Substance: TIOPRONIN
  3. AMOXICILLIN. [Concomitant]
     Active Substance: AMOXICILLIN
     Indication: CHEST INJURY
     Dates: start: 20210308, end: 20210311
  4. BETAMETHASONE SODIUM PHOSPHATE [Concomitant]
     Active Substance: BETAMETHASONE SODIUM PHOSPHATE
  5. CLAVULANATE POTASSIUM [Concomitant]
     Active Substance: CLAVULANATE POTASSIUM
     Indication: CHEST INJURY
     Dates: start: 20210308, end: 20210311
  6. TRASTUZUMAB. [Suspect]
     Active Substance: TRASTUZUMAB
     Indication: BREAST CANCER METASTATIC
     Route: 041
     Dates: start: 20210120
  7. DOCETAXEL. [Suspect]
     Active Substance: DOCETAXEL
     Indication: BREAST CANCER METASTATIC
     Route: 065
     Dates: start: 20210120
  8. DOCETAXEL. [Suspect]
     Active Substance: DOCETAXEL
     Route: 065
     Dates: start: 20210225
  9. PYROTINIB MALEATE. [Suspect]
     Active Substance: PYROTINIB MALEATE
     Indication: BREAST CANCER METASTATIC
     Route: 048
     Dates: start: 20210126, end: 20210308

REACTIONS (1)
  - Alanine aminotransferase increased [Not Recovered/Not Resolved]

NARRATIVE: CASE EVENT DATE: 20210308
